FAERS Safety Report 4876104-6 (Version None)
Quarter: 2006Q1

REPORT INFORMATION
  Report Type: 
  Country: None (occurrence: None)
  Receive Date: 20060106
  Receipt Date: 20060106
  Transmission Date: 20060701
  Serious: Yes (Life-Threatening)
  Sender: FDA-Public Use
  Company Number: None

PATIENT
  Sex: Male
  Weight: 86.1834 kg

DRUGS (1)
  1. BENAZEPRIL  10MG MYLAN [Suspect]
     Indication: BLOOD PRESSURE
     Dosage: 10MG 1 DAILY PO
     Route: 048
     Dates: start: 20050627, end: 20051201

REACTIONS (2)
  - FEELING ABNORMAL [None]
  - MALAISE [None]
